FAERS Safety Report 21621401 (Version 1)
Quarter: 2022Q4

REPORT INFORMATION
  Report Type: Spontaneous
  Country: US (occurrence: None)
  Receive Date: 20221118
  Receipt Date: 20221118
  Transmission Date: 20230112
  Serious: Yes (Life-Threatening)
  Sender: FDA-Public Use
  Company Number: None

PATIENT
  Age: 19 Year
  Sex: Female
  Weight: 70.7 kg

DRUGS (1)
  1. BREXUCABTAGENE AUTOLEUCEL [Suspect]
     Active Substance: BREXUCABTAGENE AUTOLEUCEL
     Indication: Acute lymphocytic leukaemia
     Dosage: FREQUENCY : ONCE;?
     Route: 042

REACTIONS (14)
  - Pyrexia [None]
  - Tachycardia [None]
  - Hypotension [None]
  - Cytokine release syndrome [None]
  - Mental status changes [None]
  - Aphasia [None]
  - Stupor [None]
  - Seizure [None]
  - Depressed level of consciousness [None]
  - Hypoxia [None]
  - Pneumonia aspiration [None]
  - Hyperferritinaemia [None]
  - Bradycardia [None]
  - Autonomic neuropathy [None]

NARRATIVE: CASE EVENT DATE: 20220724
